FAERS Safety Report 4792093-7 (Version None)
Quarter: 2005Q4

REPORT INFORMATION
  Report Type: 
  Country: None (occurrence: None)
  Receive Date: 20051007
  Receipt Date: 20050902
  Transmission Date: 20060501
  Serious: Yes (Life-Threatening, Hospitalization, Disabling)
  Sender: FDA-Public Use
  Company Number: AU-MERCK-0509AUS00010

PATIENT
  Age: 64 Year
  Sex: Male
  Weight: 80 kg

DRUGS (2)
  1. NOROXIN [Suspect]
     Indication: MORGANELLA INFECTION
     Route: 048
     Dates: start: 20050908, end: 20050915
  2. AMOXICILLIN AND CLAVULANATE POTASSIUM [Concomitant]
     Indication: RESPIRATORY DISORDER
     Route: 048
     Dates: start: 20050828, end: 20050901

REACTIONS (5)
  - ARTHRALGIA [None]
  - BACK PAIN [None]
  - CLOSTRIDIAL INFECTION [None]
  - DIARRHOEA [None]
  - TENDON DISORDER [None]
